FAERS Safety Report 15561270 (Version 7)
Quarter: 2019Q1

REPORT INFORMATION
  Report Type: Spontaneous
  Country: US (occurrence: US)
  Receive Date: 20181029
  Receipt Date: 20190219
  Transmission Date: 20190417
  Serious: Yes (Death, Hospitalization, Other)
  Sender: FDA-Public Use
  Company Number: US-GLAXOSMITHKLINE-US2018GSK194025

PATIENT
  Age: 56 Year
  Sex: Female

DRUGS (8)
  1. FLOLAN [Suspect]
     Active Substance: EPOPROSTENOL SODIUM
     Dosage: 41 NG/KG/MIN
     Route: 042
     Dates: start: 20020823
  2. FLOLAN [Suspect]
     Active Substance: EPOPROSTENOL SODIUM
     Indication: PULMONARY ARTERIAL HYPERTENSION
     Dosage: 41 NG/KG/MIN CONTINUOUS
     Route: 042
     Dates: start: 20020823
  3. FLOLAN [Suspect]
     Active Substance: EPOPROSTENOL SODIUM
     Dosage: 41 NG/KG/MIN CONTINUOUSLY
     Route: 042
     Dates: start: 20020823
  4. FLOLAN [Suspect]
     Active Substance: EPOPROSTENOL SODIUM
     Indication: PULMONARY ARTERIAL HYPERTENSION
     Dosage: UNK
  5. FLOLAN [Suspect]
     Active Substance: EPOPROSTENOL SODIUM
     Dosage: UNK
  6. FLOLAN DILUENT PH 12 [Suspect]
     Active Substance: GLYCINE\MANNITOL\SODIUM CHLORIDE
     Dosage: UNK
     Dates: start: 20181108
  7. FLOLAN DILUENT PH 12 [Suspect]
     Active Substance: GLYCINE\MANNITOL\SODIUM CHLORIDE
     Dosage: UNK
  8. FLOLAN DILUENT PH 12 [Suspect]
     Active Substance: GLYCINE\MANNITOL\SODIUM CHLORIDE
     Indication: PULMONARY ARTERIAL HYPERTENSION
     Dosage: UNK, CO
     Route: 042
     Dates: start: 20181108

REACTIONS (17)
  - Epistaxis [Unknown]
  - Weight increased [Unknown]
  - Secretion discharge [Unknown]
  - Hypertension [Unknown]
  - Urinary tract infection [Unknown]
  - Swelling [Unknown]
  - Transfusion [Unknown]
  - Systemic infection [Unknown]
  - Pneumonia [Unknown]
  - Hospice care [Unknown]
  - Hospitalisation [Recovered/Resolved]
  - Fluid retention [Unknown]
  - Therapeutic procedure [Unknown]
  - Death [Fatal]
  - Cardiac failure congestive [Unknown]
  - Haemorrhage [Unknown]
  - Chronic kidney disease [Unknown]

NARRATIVE: CASE EVENT DATE: 20190206
